FAERS Safety Report 15778029 (Version 1)
Quarter: 2018Q4

REPORT INFORMATION
  Report Type: Spontaneous
  Country: CN (occurrence: CN)
  Receive Date: 20181231
  Receipt Date: 20181231
  Transmission Date: 20190205
  Serious: Yes (Hospitalization)
  Sender: FDA-Public Use
  Company Number: CN-PFIZER INC-2018534754

PATIENT
  Age: 75 Year
  Sex: Female
  Weight: 62 kg

DRUGS (3)
  1. MEPEM [Suspect]
     Active Substance: MEROPENEM
     Indication: CENTRAL NERVOUS SYSTEM INFECTION
     Dosage: 0.5 G, 4X/DAY (Q6H)
     Route: 041
     Dates: start: 20181220, end: 20181225
  2. FLUCONAZOLE. [Concomitant]
     Active Substance: FLUCONAZOLE
     Dosage: 100 MG, DAILY
     Dates: start: 20181220, end: 20181225
  3. ZYVOX [Concomitant]
     Active Substance: LINEZOLID
     Dosage: 600 ML, 2X/DAY (Q12H)
     Dates: start: 20181220, end: 20181225

REACTIONS (1)
  - Blister [Recovering/Resolving]

NARRATIVE: CASE EVENT DATE: 20181224
